FAERS Safety Report 8817027 (Version 1)
Quarter: 2012Q4

REPORT INFORMATION
  Report Type: Spontaneous
  Country: GB (occurrence: None)
  Receive Date: 20121002
  Receipt Date: 20121002
  Transmission Date: 20130627
  Serious: Yes (Disabling)
  Sender: FDA-Public Use
  Company Number: LUPIN LPHARMACEUTICALS INC.

PATIENT
  Age: 89 Year
  Sex: Male

DRUGS (7)
  1. SIMVASTATIN (UNKNOWN) [Suspect]
     Indication: HYPERCHOLESTEROLAEMIA
     Dosage: 40 mg (40 mg, 1 in 1 d), oral
     Route: 048
     Dates: end: 20120829
  2. SIMVASTATIN (UNKNOWN) [Suspect]
     Indication: PROPHYLAXIS
     Dosage: 40 mg (40 mg, 1 in 1 d), oral
     Route: 048
     Dates: end: 20120829
  3. CYPROTERONE ACETATE [Suspect]
     Indication: PROSTATE CANCER
     Dosage: 300 mg (100 mg, 3 in 1 d), oral
     Route: 048
     Dates: start: 20120731, end: 20120829
  4. VITAMIN D +VITAMIN SUBSTANCES [Concomitant]
  5. AMLODIPINE [Concomitant]
  6. TRIPTORELIN + TRIPTORELIN ACETATE + TRIPTORELIN PAMOATE [Concomitant]
  7. IRON (FERROUS FUMARATE) [Concomitant]

REACTIONS (4)
  - Renal failure acute [None]
  - Rhabdomyolysis [None]
  - Drug interaction [None]
  - Haemodialysis [None]
